FAERS Safety Report 9028014 (Version 1)
Quarter: 2013Q1

REPORT INFORMATION
  Report Type: Spontaneous
  Country: FR (occurrence: FR)
  Receive Date: 20130123
  Receipt Date: 20130123
  Transmission Date: 20140127
  Serious: Yes (Hospitalization, Other)
  Sender: FDA-Public Use
  Company Number: FR-JNJFOC-20130105261

PATIENT
  Age: 69 None
  Sex: Male
  Weight: 64 kg

DRUGS (48)
  1. DUROGESIC [Suspect]
     Indication: PRODUCT USED FOR UNKNOWN INDICATION
     Route: 062
  2. SORAFENIB [Suspect]
     Indication: HEPATIC CANCER
     Route: 048
     Dates: start: 20110831, end: 20110906
  3. SORAFENIB [Suspect]
     Indication: HEPATIC CANCER
     Route: 048
     Dates: start: 20100901, end: 20110802
  4. SORAFENIB [Suspect]
     Indication: HEPATIC CANCER
     Route: 048
     Dates: start: 20100518, end: 20100615
  5. SORAFENIB [Suspect]
     Indication: HEPATIC CANCER
     Route: 048
     Dates: start: 20100701, end: 20100720
  6. FENTANYL CITRATE [Suspect]
     Indication: PRODUCT USED FOR UNKNOWN INDICATION
     Route: 065
     Dates: start: 201003, end: 20100522
  7. ERLOTINIB [Suspect]
     Indication: HEPATIC CANCER
     Route: 048
     Dates: start: 20100518, end: 20100614
  8. ERLOTINIB [Suspect]
     Indication: HEPATIC CANCER
     Route: 048
     Dates: start: 20110831, end: 20110906
  9. ERLOTINIB [Suspect]
     Indication: HEPATIC CANCER
     Route: 048
     Dates: start: 20100701, end: 20110802
  10. UNKNOWN MEDICATION [Suspect]
     Indication: HEPATIC CANCER
     Route: 065
     Dates: start: 20100518, end: 20100615
  11. RENUTRYL [Concomitant]
     Route: 065
     Dates: start: 20100607
  12. LACTULOSE [Concomitant]
     Route: 065
     Dates: start: 201005, end: 20100621
  13. LODOZ [Concomitant]
     Route: 065
     Dates: start: 2000
  14. COLD + SINUS MEDICATION [Concomitant]
     Route: 065
  15. ALOPLASTINE [Concomitant]
     Route: 065
     Dates: start: 201007
  16. ALOPLASTINE [Concomitant]
     Route: 065
     Dates: start: 20110531, end: 20110803
  17. DOLIPRANE [Concomitant]
     Route: 065
     Dates: start: 20100616, end: 20100621
  18. DOLIPRANE [Concomitant]
     Route: 065
     Dates: start: 20110412, end: 20110803
  19. DIFFU-K [Concomitant]
     Route: 065
     Dates: start: 20100619, end: 20100621
  20. DIOSMECTITE [Concomitant]
     Route: 065
  21. DEXERYL [Concomitant]
     Route: 065
     Dates: start: 20110531, end: 20110823
  22. TROLAMINE [Concomitant]
     Route: 065
     Dates: start: 20110531, end: 20110823
  23. DIPROSONE [Concomitant]
     Route: 065
  24. FLECTOR PATCHES [Concomitant]
     Route: 065
     Dates: start: 20110309, end: 20110711
  25. IXPRIM [Concomitant]
     Route: 065
     Dates: start: 20110419, end: 20110612
  26. DOMPERIDONE [Concomitant]
     Route: 065
     Dates: start: 20110510, end: 20110803
  27. SMECTA [Concomitant]
     Route: 065
     Dates: start: 20110510, end: 20110713
  28. SMECTA [Concomitant]
     Route: 065
     Dates: start: 20100617, end: 20100617
  29. IMODIUM [Concomitant]
     Route: 065
     Dates: start: 20110510, end: 20110803
  30. PHLOROGLUCINOL [Concomitant]
     Route: 065
     Dates: start: 20110510, end: 20110713
  31. SPASFON [Concomitant]
     Route: 048
     Dates: start: 20110906, end: 201109
  32. ALVERINE CITRATE, SIMETICONE [Concomitant]
     Route: 048
     Dates: start: 20110906, end: 201109
  33. CORTANCYL [Concomitant]
     Route: 065
     Dates: start: 20110916, end: 20110919
  34. PRAXILENE [Concomitant]
     Route: 065
     Dates: start: 20110916, end: 20110919
  35. MYOLASTAN [Concomitant]
     Route: 065
     Dates: start: 20110916, end: 20110919
  36. ADVIL [Concomitant]
     Route: 065
     Dates: start: 20110916, end: 20110918
  37. CARBOMER [Concomitant]
     Route: 065
     Dates: start: 20110916, end: 20110919
  38. NUREFLEX [Concomitant]
     Route: 065
     Dates: start: 20110919, end: 20110919
  39. MOTILIUM [Concomitant]
     Route: 065
     Dates: start: 201109, end: 20110920
  40. CARDENSIEL [Concomitant]
     Route: 065
     Dates: start: 20110920, end: 20110921
  41. RIVOTRIL [Concomitant]
     Route: 065
     Dates: start: 20110920, end: 20110921
  42. HYDROCHLOROTHIAZIDE [Concomitant]
     Route: 065
     Dates: start: 20110920, end: 20110921
  43. NACL [Concomitant]
     Route: 065
     Dates: start: 20110920, end: 20110922
  44. PRIMPERAN [Concomitant]
     Route: 065
     Dates: start: 20110920, end: 20110920
  45. SOLU-MEDROL [Concomitant]
     Route: 065
     Dates: start: 20110920, end: 20110922
  46. SODIUM BICARBONATE [Concomitant]
     Route: 065
     Dates: start: 20110920, end: 20110926
  47. PREXIDINE [Concomitant]
     Route: 065
     Dates: start: 20110916, end: 20110919
  48. TRAMADOL HYDROCHLORIDE [Concomitant]
     Route: 065

REACTIONS (8)
  - Confusional state [Unknown]
  - Dehydration [Recovered/Resolved]
  - Headache [Recovering/Resolving]
  - Toxicity to various agents [Unknown]
  - Renal failure [Unknown]
  - Hepatocellular injury [Unknown]
  - VIIth nerve paralysis [Not Recovered/Not Resolved]
  - Adverse event [Unknown]
